FAERS Safety Report 4459113-0 (Version None)
Quarter: 2004Q3

REPORT INFORMATION
  Report Type: 
  Country: None (occurrence: None)
  Receive Date: 20040922
  Receipt Date: 20040922
  Transmission Date: 20050211
  Serious: Yes (Hospitalization)
  Sender: FDA-Public Use
  Company Number: None

PATIENT
  Sex: Female
  Weight: 55.3388 kg

DRUGS (5)
  1. TOPOTECAN [Suspect]
     Indication: SMALL CELL LUNG CANCER STAGE UNSPECIFIED
     Dosage: 3 MG/M2 - QWEEK IV
     Route: 042
     Dates: start: 20040810, end: 20040907
  2. SOLU-MEDROL [Concomitant]
  3. ZOMETA [Concomitant]
  4. OXYCONTIN [Concomitant]
  5. DECADRON [Concomitant]

REACTIONS (3)
  - ACUTE RESPIRATORY FAILURE [None]
  - ANGIOGRAM PULMONARY ABNORMAL [None]
  - NEOPLASM PROGRESSION [None]
